FAERS Safety Report 6707100-1 (Version None)
Quarter: 2010Q2

REPORT INFORMATION
  Report Type: 
  Country: None (occurrence: None)
  Receive Date: 20100503
  Receipt Date: 20100426
  Transmission Date: 20101027
  Serious: Yes (Death)
  Sender: FDA-Public Use
  Company Number: A0856735A

PATIENT
  Age: 28 Year
  Sex: Male

DRUGS (1)
  1. WELLBUTRIN [Suspect]
     Indication: DRUG USE FOR UNKNOWN INDICATION
     Dosage: 100MG PER DAY
     Route: 048

REACTIONS (2)
  - DEATH [None]
  - OVERDOSE [None]
